FAERS Safety Report 4733028-2 (Version None)
Quarter: 2005Q3

REPORT INFORMATION
  Report Type: 
  Country: None (occurrence: None)
  Receive Date: 20050801
  Receipt Date: 20050719
  Transmission Date: 20060218
  Serious: Yes (Hospitalization, Other)
  Sender: FDA-Public Use
  Company Number: 2005104156

PATIENT
  Age: 34 Year
  Sex: Male

DRUGS (3)
  1. ZOLOFT [Suspect]
     Indication: DEPRESSION
     Dosage: 7 DOSE FORMS (50 MG), ORAL
     Route: 048
     Dates: end: 20050522
  2. ATHYMIL (MIANSERIN HYDROCHLORIDE) [Suspect]
     Indication: DEPRESSION
     Dosage: 7 DOSE FORMS (30 MG), ORAL
     Route: 048
  3. TERCIAN (CYAMEMAZINE) [Suspect]
     Indication: ILL-DEFINED DISORDER
     Dosage: 15 DOSE FORMS (100 MG), ORAL
     Route: 048

REACTIONS (5)
  - DRUG TOXICITY [None]
  - GRAND MAL CONVULSION [None]
  - INTENTIONAL MISUSE [None]
  - SLUGGISHNESS [None]
  - SOMNOLENCE [None]
